FAERS Safety Report 6118229-3 (Version None)
Quarter: 2009Q1

REPORT INFORMATION
  Report Type: 
  Country: None (occurrence: None)
  Receive Date: 20090314
  Receipt Date: 20090211
  Transmission Date: 20090719
  Serious: No
  Sender: FDA-Public Use
  Company Number: US-ABBOTT-09P-163-0503231-00

PATIENT
  Sex: Female
  Weight: 127.12 kg

DRUGS (3)
  1. HUMIRA [Suspect]
     Indication: ANKYLOSING SPONDYLITIS
     Route: 058
     Dates: start: 20070201
  2. HUMIRA [Suspect]
     Route: 058
     Dates: start: 20070101
  3. FLUVOXAMINE MALEATE [Concomitant]
     Indication: OBSESSIVE-COMPULSIVE DISORDER

REACTIONS (2)
  - DRUG INEFFECTIVE [None]
  - INCORRECT DOSE ADMINISTERED [None]
